FAERS Safety Report 9142725 (Version 1)
Quarter: 2013Q1

REPORT INFORMATION
  Report Type: Spontaneous
  Country: CA (occurrence: CA)
  Receive Date: 20130306
  Receipt Date: 20130306
  Transmission Date: 20140127
  Serious: Yes (Other)
  Sender: FDA-Public Use
  Company Number: CA-TEVA-389917USA

PATIENT
  Age: 53 Year
  Sex: Female
  Weight: 64.92 kg

DRUGS (7)
  1. COPAXONE [Suspect]
     Dosage: 20 MILLIGRAM DAILY;
     Route: 058
  2. COPAXONE [Suspect]
     Dosage: 20 MILLIGRAM DAILY;
     Route: 058
  3. CALCIUM W/VITAMIN D NOS [Concomitant]
  4. COLACE [Concomitant]
  5. NEURONTIN [Concomitant]
  6. PANTOLOC [Concomitant]
  7. SENOKOT [Concomitant]

REACTIONS (8)
  - Haemoglobin increased [Recovered/Resolved]
  - Alanine aminotransferase increased [Recovered/Resolved]
  - Aspartate aminotransferase increased [Recovered/Resolved]
  - Bilirubin conjugated increased [Recovered/Resolved]
  - Blood alkaline phosphatase increased [Recovered/Resolved]
  - Blood bilirubin decreased [Recovered/Resolved]
  - Eosinophil count increased [Recovered/Resolved]
  - Low density lipoprotein increased [Recovered/Resolved]
